FAERS Safety Report 7555834-1 (Version None)
Quarter: 2011Q2

REPORT INFORMATION
  Report Type: 
  Country: None (occurrence: None)
  Receive Date: 20110618
  Receipt Date: 20110518
  Transmission Date: 20111010
  Serious: No
  Sender: FDA-Public Use
  Company Number: US-BAYER-2011-043248

PATIENT
  Sex: Female

DRUGS (2)
  1. MIRENA [Suspect]
     Dosage: UNK
     Dates: start: 20110513
  2. YAZ [Suspect]
     Indication: MENORRHAGIA

REACTIONS (2)
  - NAUSEA [None]
  - HOT FLUSH [None]
